FAERS Safety Report 8736088 (Version 2)
Quarter: 2012Q4

REPORT INFORMATION
  Report Type: 
  Country: US (occurrence: US)
  Receive Date: 20120822
  Receipt Date: 20120924
  Transmission Date: 20130627
  Serious: Yes (Death)
  Sender: FDA-Public Use
  Company Number: US-ASTELLAS-2012US007089

PATIENT
  Sex: Male
  Weight: 72 kg

DRUGS (10)
  1. TARCEVA [Suspect]
     Indication: PRODUCT USED FOR UNKNOWN INDICATION
     Dosage: UNK
     Route: 048
  2. BEVACIZUMAB [Suspect]
     Indication: PRODUCT USED FOR UNKNOWN INDICATION
     Dosage: 680 mg, Unknown/D
     Route: 042
     Dates: start: 20120521
  3. BEVACIZUMAB [Suspect]
     Dosage: 680 mg, Unknown/D
     Route: 042
     Dates: start: 20120605
  4. BEVACIZUMAB [Suspect]
     Dosage: 680 mg, Unknown/D
     Route: 042
     Dates: start: 20120619
  5. DEXAMETHASONE [Concomitant]
     Indication: PRODUCT USED FOR UNKNOWN INDICATION
     Dosage: 2 mg, bid
     Route: 048
  6. LEVOFLOXACIN [Concomitant]
     Indication: PRODUCT USED FOR UNKNOWN INDICATION
     Dosage: 750 mg, Unknown/D
     Route: 048
  7. KEPPRA [Concomitant]
     Indication: PRODUCT USED FOR UNKNOWN INDICATION
     Dosage: 500 mg, UID/QD
     Route: 048
  8. KEPPRA [Concomitant]
     Dosage: 1000 mg, QHS
  9. HYDROCODONE BITARTRATE AND ACETAMINOPHEN [Concomitant]
     Indication: PRODUCT USED FOR UNKNOWN INDICATION
     Dosage: 325/10 mg 1-2 tablets every 4-6 hours as needed
     Route: 048
  10. LOVENOX [Concomitant]
     Indication: PRODUCT USED FOR UNKNOWN INDICATION
     Dosage: 80 mg, bid
     Route: 058

REACTIONS (1)
  - Death [Fatal]
